FAERS Safety Report 9784549 (Version 1)
Quarter: 2013Q4

REPORT INFORMATION
  Report Type: Spontaneous
  Country: US (occurrence: US)
  Receive Date: 20131226
  Receipt Date: 20131226
  Transmission Date: 20140711
  Serious: Yes (Other)
  Sender: FDA-Public Use
  Company Number: US-RB-061819-13

PATIENT
  Age: 34 Year
  Sex: Female

DRUGS (1)
  1. SUBOXONE FILM [Suspect]
     Indication: PRODUCT USED FOR UNKNOWN INDICATION
     Dosage: SUBOXONE FILM; DOSING DETAILS UNKNOWN
     Route: 065

REACTIONS (4)
  - Endometriosis [Recovered/Resolved]
  - Condition aggravated [Recovered/Resolved]
  - Carpal tunnel syndrome [Recovered/Resolved]
  - Condition aggravated [Recovered/Resolved]
